FAERS Safety Report 8373191-8 (Version None)
Quarter: 2012Q2

REPORT INFORMATION
  Report Type: 
  Country: None (occurrence: None)
  Receive Date: 20120521
  Receipt Date: 20120516
  Transmission Date: 20120825
  Serious: Yes (Other)
  Sender: FDA-Public Use
  Company Number: FI-PFIZER INC-2012118714

PATIENT
  Age: 45 Year
  Sex: Female

DRUGS (1)
  1. CABERGOLINE [Suspect]
     Dosage: 2 MG DAILY
     Dates: start: 20110101

REACTIONS (5)
  - BONE LOSS [None]
  - FEELING ABNORMAL [None]
  - ARTHRALGIA [None]
  - INSOMNIA [None]
  - CHEST PAIN [None]
